FAERS Safety Report 5789484-4 (Version None)
Quarter: 2008Q2

REPORT INFORMATION
  Report Type: 
  Country: None (occurrence: None)
  Receive Date: 20080626
  Receipt Date: 20080206
  Transmission Date: 20081010
  Serious: No
  Sender: FDA-Public Use
  Company Number: US-ASTRAZENECA-2008UW02676

PATIENT
  Age: 4 Year
  Sex: Female
  Weight: 18.1 kg

DRUGS (1)
  1. PULMICORT RESPULES [Suspect]
     Indication: PNEUMONIA PRIMARY ATYPICAL
     Dosage: 0.5 MG/2ML
     Route: 055
     Dates: start: 20080119

REACTIONS (2)
  - INCREASED APPETITE [None]
  - IRRITABILITY [None]
